FAERS Safety Report 4464070-7 (Version None)
Quarter: 2004Q4

REPORT INFORMATION
  Report Type: 
  Country: None (occurrence: None)
  Receive Date: 20041001
  Receipt Date: 20040920
  Transmission Date: 20050328
  Serious: Yes (Hospitalization, Other)
  Sender: FDA-Public Use
  Company Number: US-BRISTOL-MYERS SQUIBB COMPANY-12709309

PATIENT
  Age: 85 Year
  Sex: Male

DRUGS (11)
  1. WARFARIN SODIUM [Suspect]
  2. AZITHROMYCIN [Interacting]
     Dosage: DURATION NOT REPORTED
     Route: 048
  3. RANITIDINE [Concomitant]
  4. FUROSEMIDE [Concomitant]
  5. QUININE [Concomitant]
  6. BECLOMETHASONE DIPROPIONATE [Concomitant]
  7. SENNA [Concomitant]
  8. IPRATROPIUM BROMIDE [Concomitant]
  9. NITRAZEPAM [Concomitant]
  10. DIGOXIN [Concomitant]
  11. SALBUTEROL [Concomitant]

REACTIONS (4)
  - DRUG INTERACTION [None]
  - INTERNATIONAL NORMALISED RATIO INCREASED [None]
  - LIVER FUNCTION TEST ABNORMAL [None]
  - PNEUMONIA [None]
